FAERS Safety Report 20233760 (Version 1)
Quarter: 2021Q4

REPORT INFORMATION
  Report Type: Spontaneous
  Country: US (occurrence: US)
  Receive Date: 20211227
  Receipt Date: 20211227
  Transmission Date: 20220303
  Serious: No
  Sender: FDA-Public Use
  Company Number: US-SA-SAC20211223000821

PATIENT
  Sex: Male

DRUGS (2)
  1. JEVTANA [Suspect]
     Active Substance: CABAZITAXEL
     Dosage: 10 MG/M2
  2. JEVTANA [Suspect]
     Active Substance: CABAZITAXEL
     Dosage: 15 MG/M2

REACTIONS (1)
  - Prostatic specific antigen increased [Unknown]
